FAERS Safety Report 4488713-7 (Version None)
Quarter: 2004Q4

REPORT INFORMATION
  Report Type: 
  Country: None (occurrence: None)
  Receive Date: 20041025
  Receipt Date: 20041012
  Transmission Date: 20050328
  Serious: Yes (Hospitalization)
  Sender: FDA-Public Use
  Company Number: 2004063433

PATIENT
  Age: 59 Year
  Sex: Male

DRUGS (7)
  1. CARDURA [Suspect]
     Indication: HYPERTENSION
     Dosage: 8 MG (8 MG, 1 IN 1 D) ORAL
     Route: 048
  2. METFORMIN [Concomitant]
  3. BISOPROLOL FUMARATE [Concomitant]
  4. IRBESARTAN [Concomitant]
  5. DILTIAZEM [Concomitant]
  6. FUROSEMIDE [Concomitant]
  7. LISINOPRIL [Concomitant]

REACTIONS (1)
  - CARDIAC FAILURE [None]
